FAERS Safety Report 6717647-X (Version None)
Quarter: 2010Q2

REPORT INFORMATION
  Report Type: 
  Country: None (occurrence: None)
  Receive Date: 20100510
  Receipt Date: 20100430
  Transmission Date: 20101027
  Serious: No
  Sender: FDA-Public Use
  Company Number: A0852418A

PATIENT
  Age: 83 Year
  Sex: Male
  Weight: 81.8 kg

DRUGS (2)
  1. ALTABAX [Suspect]
     Indication: SQUAMOUS CELL CARCINOMA
     Dosage: 1APP PER DAY
     Route: 061
     Dates: start: 20100322, end: 20100323
  2. KEFLEX [Concomitant]

REACTIONS (7)
  - APPLICATION SITE PAIN [None]
  - APPLICATION SITE SWELLING [None]
  - APPLICATION SITE WARMTH [None]
  - ENTEROBACTER INFECTION [None]
  - ERYTHEMA [None]
  - HYPERSENSITIVITY [None]
  - PAIN [None]
